FAERS Safety Report 7167795-8 (Version None)
Quarter: 2010Q4

REPORT INFORMATION
  Report Type: 
  Country: None (occurrence: None)
  Receive Date: 20101216
  Receipt Date: 20101209
  Transmission Date: 20110411
  Serious: Yes (Other)
  Sender: FDA-Public Use
  Company Number: FR-AMGEN-FRASP2010008267

PATIENT

DRUGS (15)
  1. NEULASTA [Suspect]
     Indication: CHEMOTHERAPY
     Dosage: UNK
     Dates: start: 20100914, end: 20100914
  2. NEULASTA [Suspect]
     Dosage: UNK
     Dates: start: 20101005, end: 20101005
  3. NEULASTA [Suspect]
     Dosage: UNK
     Dates: start: 20101026, end: 20101026
  4. NEULASTA [Suspect]
     Dosage: UNK
     Dates: start: 20101117, end: 20101117
  5. NEULASTA [Suspect]
  6. TAXOTERE [Concomitant]
     Indication: BREAST CANCER
     Dosage: UNK
     Dates: start: 20100913, end: 20100913
  7. TAXOTERE [Concomitant]
     Dosage: UNK
     Dates: start: 20101004, end: 20101004
  8. TAXOTERE [Concomitant]
     Dosage: UNK
     Dates: start: 20101025, end: 20101025
  9. TAXOTERE [Concomitant]
     Dosage: UNK
     Dates: start: 20101116, end: 20101116
  10. TAXOTERE [Concomitant]
     Dosage: UNK
     Dates: start: 20101206, end: 20101206
  11. HERCEPTIN [Concomitant]
     Indication: BREAST CANCER
     Dosage: UNK
     Dates: start: 20100913, end: 20100913
  12. HERCEPTIN [Concomitant]
     Dosage: UNK
     Dates: start: 20101004, end: 20101004
  13. HERCEPTIN [Concomitant]
     Dosage: UNK
     Dates: start: 20101025, end: 20101025
  14. HERCEPTIN [Concomitant]
     Dosage: UNK
     Dates: start: 20101115, end: 20101115
  15. HERCEPTIN [Concomitant]
     Dosage: UNK
     Dates: start: 20101206, end: 20101206

REACTIONS (9)
  - ANGIOEDEMA [None]
  - ARTHRALGIA [None]
  - EPISTAXIS [None]
  - HAEMATOCHEZIA [None]
  - HAEMATURIA [None]
  - MYALGIA [None]
  - ODYNOPHAGIA [None]
  - PHARYNGEAL OEDEMA [None]
  - VOMITING [None]
